FAERS Safety Report 7423404-1 (Version None)
Quarter: 2011Q2

REPORT INFORMATION
  Report Type: 
  Country: None (occurrence: None)
  Receive Date: 20110419
  Receipt Date: 20110411
  Transmission Date: 20111010
  Serious: Yes (Hospitalization)
  Sender: FDA-Public Use
  Company Number: CA-ROCHE-770969

PATIENT
  Age: 32 Year
  Sex: Male

DRUGS (4)
  1. RITONAVIR [Interacting]
     Route: 065
  2. FUCIDINE CAP [Interacting]
     Route: 065
  3. SAQUINAVIR [Suspect]
     Route: 065
  4. D4T [Concomitant]

REACTIONS (10)
  - FATIGUE [None]
  - JAUNDICE [None]
  - PARAESTHESIA [None]
  - DRUG INTERACTION [None]
  - DECREASED APPETITE [None]
  - TOXICITY TO VARIOUS AGENTS [None]
  - ARTHRALGIA [None]
  - BLOOD BILIRUBIN INCREASED [None]
  - HEPATITIS [None]
  - NAUSEA [None]
